FAERS Safety Report 10574933 (Version 1)
Quarter: 2014Q4

REPORT INFORMATION
  Report Type: Spontaneous
  Country: FR (occurrence: FR)
  Receive Date: 20141110
  Receipt Date: 20141110
  Transmission Date: 20150529
  Serious: Yes (Death, Hospitalization)
  Sender: FDA-Public Use
  Company Number: FR-ROCHE-1487714

PATIENT
  Age: 69 Year
  Sex: Male

DRUGS (8)
  1. ALIMTA [Suspect]
     Active Substance: PEMETREXED DISODIUM
     Indication: NEOPLASM MALIGNANT
     Dosage: 4 CYCLES OF 925 MG THEN 3 CYCLES OF 925 MG IN MAINTENANCE
     Route: 042
     Dates: start: 201403, end: 20140811
  2. CARBOPLATIN. [Concomitant]
     Active Substance: CARBOPLATIN
     Indication: NEOPLASM MALIGNANT
     Dosage: 4 CYCLES (C1: 11050 MG; C2: 700 MG; C3: 770 MG; C4: 730 MG)
     Route: 042
     Dates: start: 201403, end: 201405
  3. NORSET [Concomitant]
     Active Substance: MIRTAZAPINE
     Dosage: LONG-TERM TREATMENT
     Route: 048
  4. SPECIAFOLDINE [Concomitant]
     Active Substance: FOLIC ACID
     Dosage: LONG-TERM TREATMENT
     Route: 048
  5. AVASTIN [Suspect]
     Active Substance: BEVACIZUMAB
     Indication: NEOPLASM MALIGNANT
     Dosage: 4 CYCLES OF 575 MG THEN 3 CYCLES OF 575 MG IN MAINTENANCE
     Route: 011
     Dates: start: 201403, end: 20140822
  6. HYDROCHLOROTHIAZIDE. [Concomitant]
     Active Substance: HYDROCHLOROTHIAZIDE
     Route: 048
  7. TRAMADOL [Concomitant]
     Active Substance: TRAMADOL
     Indication: PAIN
     Dosage: LONG-TERM TREATMENT 1 TABLET IN THE MORNING AND IN THE EVENING IF PAIN.
     Route: 048
  8. AMLODIPINE [Concomitant]
     Active Substance: AMLODIPINE BESYLATE
     Dosage: LONG-TERM TREATMENT
     Route: 048

REACTIONS (1)
  - Laryngeal necrosis [Fatal]

NARRATIVE: CASE EVENT DATE: 20140827
